FAERS Safety Report 9154053 (Version 1)
Quarter: 2013Q1

REPORT INFORMATION
  Report Type: Spontaneous
  Country: US (occurrence: None)
  Receive Date: 20130306
  Receipt Date: 20130306
  Transmission Date: 20140127
  Serious: Yes (Other)
  Sender: FDA-Public Use
  Company Number: None

PATIENT
  Sex: Female
  Weight: 29.03 kg

DRUGS (1)
  1. CONCENTA, MFG UNKNOWN [Suspect]
     Indication: ATTENTION DEFICIT/HYPERACTIVITY DISORDER
     Route: 048
     Dates: start: 201110, end: 20120531

REACTIONS (7)
  - Nervousness [None]
  - Feeling jittery [None]
  - Decreased appetite [None]
  - Weight decreased [None]
  - Panic attack [None]
  - Anxiety disorder [None]
  - Overweight [None]
